FAERS Safety Report 16240501 (Version 2)
Quarter: 2019Q3

REPORT INFORMATION
  Report Type: Spontaneous
  Country: FR (occurrence: FR)
  Receive Date: 20190425
  Receipt Date: 20190905
  Transmission Date: 20191004
  Serious: Yes (Hospitalization)
  Sender: FDA-Public Use
  Company Number: FR-MYLANLABS-2019M1039068

PATIENT
  Age: 52 Year
  Sex: Female

DRUGS (3)
  1. BISOPROLOL [Suspect]
     Active Substance: BISOPROLOL
     Indication: PRODUCT USED FOR UNKNOWN INDICATION
     Dosage: UNK
     Route: 048
     Dates: start: 20181207, end: 20181217
  2. FLECAINE 100 MG, COMPRIM? S?CABLE [Suspect]
     Active Substance: FLECAINIDE ACETATE
     Indication: VENTRICULAR TACHYCARDIA
     Dosage: UNK
     Route: 048
  3. MONO TILDIEM [Suspect]
     Active Substance: DILTIAZEM HYDROCHLORIDE
     Indication: VENTRICULAR TACHYCARDIA
     Dosage: 1 DOSAGE FORM, QD
     Route: 048
     Dates: end: 20181217

REACTIONS (1)
  - Arrhythmia [Recovered/Resolved]

NARRATIVE: CASE EVENT DATE: 20181217
